FAERS Safety Report 17986400 (Version 1)
Quarter: 2020Q3

REPORT INFORMATION
  Report Type: Spontaneous
  Country: GB (occurrence: GB)
  Receive Date: 20200707
  Receipt Date: 20200707
  Transmission Date: 20201103
  Serious: Yes (Other)
  Sender: FDA-Public Use
  Company Number: GB-AUROBINDO-AUR-APL-2020-032104

PATIENT
  Age: 17 Year
  Sex: Female

DRUGS (2)
  1. KENALOG [Suspect]
     Active Substance: TRIAMCINOLONE ACETONIDE
     Indication: COCCYDYNIA
     Dosage: 1 MILLILITER
  2. BUPIVACAINE HYDROCHLORIDE SOLUTION FOR INJECTION 5 MG/ML [Suspect]
     Active Substance: BUPIVACAINE HYDROCHLORIDE
     Indication: COCCYDYNIA
     Dosage: 4 MILLILITER

REACTIONS (5)
  - Off label use [Unknown]
  - Motor dysfunction [Not Recovered/Not Resolved]
  - Conus medullaris syndrome [Not Recovered/Not Resolved]
  - Back pain [Not Recovered/Not Resolved]
  - Accidental exposure to product [Unknown]
